FAERS Safety Report 7687816-3 (Version None)
Quarter: 2011Q3

REPORT INFORMATION
  Report Type: 
  Country: None (occurrence: None)
  Receive Date: 20110816
  Receipt Date: 20110816
  Transmission Date: 20111222
  Serious: Yes (Life-Threatening, Hospitalization, Disabling, Congenital Anomaly, Other)
  Sender: FDA-Public Use
  Company Number: None

PATIENT
  Sex: Male
  Weight: 120.2032 kg

DRUGS (1)
  1. RISPERIDONE [Suspect]
     Dosage: 50MG EVERY 15 DAYS SHOTS
     Dates: start: 20110409

REACTIONS (2)
  - UNEVALUABLE EVENT [None]
  - FEELING OF DESPAIR [None]
